FAERS Safety Report 15107340 (Version 2)
Quarter: 2018Q3

REPORT INFORMATION
  Report Type: Spontaneous
  Country: US (occurrence: US)
  Receive Date: 20180704
  Receipt Date: 20180713
  Transmission Date: 20181010
  Serious: No
  Sender: FDA-Public Use
  Company Number: US-GLAXOSMITHKLINE-US2018117626

PATIENT
  Sex: Female

DRUGS (1)
  1. BREO ELLIPTA [Suspect]
     Active Substance: FLUTICASONE FUROATE\VILANTEROL TRIFENATATE
     Indication: PRODUCT USED FOR UNKNOWN INDICATION
     Dosage: UNK

REACTIONS (6)
  - Hallucination [Recovered/Resolved]
  - Nonspecific reaction [Unknown]
  - Throat tightness [Recovered/Resolved]
  - Heart rate increased [Recovered/Resolved]
  - Dysphonia [Recovered/Resolved]
  - Headache [Recovered/Resolved]
